FAERS Safety Report 7119272-8 (Version None)
Quarter: 2010Q4

REPORT INFORMATION
  Report Type: 
  Country: None (occurrence: None)
  Receive Date: 20101123
  Receipt Date: 20101111
  Transmission Date: 20110411
  Serious: Yes (Other)
  Sender: FDA-Public Use
  Company Number: US-ELI_LILLY_AND_COMPANY-US201011003692

PATIENT
  Sex: Female

DRUGS (4)
  1. HUMULIN 50/50 [Suspect]
     Indication: DIABETES MELLITUS
     Dosage: 40 U, EACH MORNING
  2. HUMULIN 50/50 [Suspect]
     Dosage: 28 U, EACH EVENING
  3. HUMALOG MIX 75/25 [Suspect]
  4. CORTISONE [Concomitant]
     Indication: NECK PAIN
     Dates: start: 20100901, end: 20100901

REACTIONS (5)
  - BLOOD GLUCOSE DECREASED [None]
  - BLOOD GLUCOSE INCREASED [None]
  - DRUG DISPENSING ERROR [None]
  - NECK PAIN [None]
  - SURGERY [None]
